FAERS Safety Report 20153578 (Version 1)
Quarter: 2021Q4

REPORT INFORMATION
  Report Type: Spontaneous
  Country: PR (occurrence: PR)
  Receive Date: 20211206
  Receipt Date: 20211206
  Transmission Date: 20220303
  Serious: Yes (Other)
  Sender: FDA-Public Use
  Company Number: PR-ABBVIE-21K-131-4160375-00

PATIENT
  Age: 30 Year
  Sex: Female

DRUGS (1)
  1. SKYRIZI [Suspect]
     Active Substance: RISANKIZUMAB-RZAA
     Indication: Psoriasis
     Route: 058
     Dates: start: 20211014

REACTIONS (9)
  - Skin exfoliation [Unknown]
  - Rash erythematous [Recovering/Resolving]
  - Lip swelling [Unknown]
  - Target skin lesion [Unknown]
  - Lip exfoliation [Unknown]
  - Folliculitis [Unknown]
  - Rash pustular [Unknown]
  - Blister [Unknown]
  - Rash [Unknown]

NARRATIVE: CASE EVENT DATE: 20211001
